FAERS Safety Report 15722942 (Version 1)
Quarter: 2018Q4

REPORT INFORMATION
  Report Type: Spontaneous
  Country: US (occurrence: US)
  Receive Date: 20181214
  Receipt Date: 20181214
  Transmission Date: 20190205
  Serious: Yes (Other)
  Sender: FDA-Public Use
  Company Number: US-TEVA-2018-US-986752

PATIENT
  Sex: Male

DRUGS (1)
  1. ENOXAPARIN  SODIUM INJECTION [Suspect]
     Active Substance: ENOXAPARIN SODIUM
     Dosage: 1 DF:  100 MG/1 ML
     Route: 065

REACTIONS (2)
  - Product storage error [Unknown]
  - Cerebrovascular accident [Unknown]
